FAERS Safety Report 9303204 (Version 2)
Quarter: 2013Q2

REPORT INFORMATION
  Report Type: Spontaneous
  Country: US (occurrence: US)
  Receive Date: 20130522
  Receipt Date: 20130527
  Transmission Date: 20140414
  Serious: No
  Sender: FDA-Public Use
  Company Number: US-PFIZER INC-2013156814

PATIENT
  Age: 58 Year
  Sex: Male
  Weight: 81.63 kg

DRUGS (2)
  1. SUTENT [Suspect]
     Indication: RENAL DISORDER
     Dosage: 50 MG, A DAY 2 WEEKS ON ONE WEEK OFF
     Dates: start: 201112
  2. LOSARTAN [Concomitant]
     Indication: HYPERTENSION
     Dosage: UNK

REACTIONS (2)
  - Ear infection [Not Recovered/Not Resolved]
  - Expired drug administered [Unknown]
